FAERS Safety Report 9819840 (Version 1)
Quarter: 2014Q1

REPORT INFORMATION
  Report Type: Spontaneous
  Country: US (occurrence: None)
  Receive Date: 20140114
  Receipt Date: 20140114
  Transmission Date: 20141002
  Serious: Yes (Hospitalization)
  Sender: FDA-Public Use
  Company Number: None

PATIENT
  Age: 71 Year
  Sex: Male
  Weight: 89.36 kg

DRUGS (1)
  1. OXALIPLATIN [Suspect]
     Indication: ADENOCARCINOMA OF COLON
     Dosage: 280 MG ONCE EVERY 2 WEEKS IV
     Route: 042
     Dates: start: 20131203

REACTIONS (11)
  - Dizziness postural [None]
  - Sensation of heaviness [None]
  - Chest discomfort [None]
  - Aphasia [None]
  - Oxygen saturation decreased [None]
  - Pharyngeal disorder [None]
  - Sensation of pressure [None]
  - Obstructive airways disorder [None]
  - Angioedema [None]
  - Laryngospasm [None]
  - Paraesthesia [None]
